FAERS Safety Report 8530292-9 (Version None)
Quarter: 2012Q2

REPORT INFORMATION
  Report Type: 
  Country: None (occurrence: None)
  Receive Date: 20120411
  Receipt Date: 20111228
  Transmission Date: 20120825
  Serious: No
  Sender: FDA-Public Use
  Company Number: PHEH2011US008626

PATIENT
  Age: 45 Year
  Sex: Female

DRUGS (5)
  1. XANAX [Concomitant]
  2. ILARIS [Suspect]
     Dosage: 180 MG, FOR EVERY 8 WEEKS
  3. KADIAN [Concomitant]
  4. PERCOCET [Concomitant]
  5. TRAMADOL HCL [Concomitant]

REACTIONS (3)
  - POSTURE ABNORMAL [None]
  - IRRITABILITY [None]
  - PAIN [None]
